FAERS Safety Report 9402292 (Version 2)
Quarter: 2013Q3

REPORT INFORMATION
  Report Type: Spontaneous
  Country: US (occurrence: US)
  Receive Date: 20130716
  Receipt Date: 20130730
  Transmission Date: 20140515
  Serious: Yes (Other)
  Sender: FDA-Public Use
  Company Number: US-COVIDIEN/TYCO HEALTHCARE/MALLINCKRODT-T201303620

PATIENT
  Sex: 0

DRUGS (13)
  1. FENTANYL TRANSDERMAL SYSTEM [Suspect]
     Indication: PAIN
     Dosage: 100 MCG/HR, Q 48-72 HOURS
     Route: 062
  2. NOVOLOG [Concomitant]
     Indication: DIABETES MELLITUS
     Dosage: 20 UNITS, BID
     Route: 058
  3. VIT D [Concomitant]
     Indication: SUPPLEMENTATION THERAPY
     Dosage: 50000 IU ONCE PER MONTH
     Route: 048
  4. TRAMADOL [Concomitant]
     Indication: PAIN
     Dosage: 50 MG, TWO TABS, PRN
     Route: 048
  5. ESCITALOPRAM [Concomitant]
     Indication: DEPRESSION
     Dosage: 20 MG, QD
     Route: 048
  6. LISINOPRIL [Concomitant]
     Dosage: 40 MG, QD
     Route: 048
  7. INDAPAMIDE [Concomitant]
     Indication: DIURETIC THERAPY
     Dosage: 2.5 MG, UNK
     Route: 048
  8. FUROSEMIDE [Concomitant]
     Indication: DIURETIC THERAPY
     Dosage: 40 MG, QD
     Route: 048
  9. VIT C [Concomitant]
     Indication: SUPPLEMENTATION THERAPY
     Dosage: 1000 MG, BID
     Route: 048
  10. CALTRATE PLUS                      /01438001/ [Concomitant]
     Indication: SUPPLEMENTATION THERAPY
     Dosage: 1 TABLET, BID
     Route: 048
  11. MULTIVITAMIN                       /00097801/ [Concomitant]
     Indication: SUPPLEMENTATION THERAPY
     Dosage: 1 TABLET, QD
     Route: 048
  12. HYDROXYCHLOROQUINE [Concomitant]
     Indication: ARTHRITIS
     Dosage: 200 MG, BID
     Route: 048
  13. VERAPAMIL [Concomitant]
     Indication: HYPERTENSION
     Dosage: 240 MG, QD
     Route: 048

REACTIONS (3)
  - Blood glucose increased [Unknown]
  - Haemorrhage subcutaneous [Recovered/Resolved]
  - Epistaxis [Recovered/Resolved]
